FAERS Safety Report 24202030 (Version 1)
Quarter: 2024Q3

REPORT INFORMATION
  Report Type: Spontaneous
  Country: US (occurrence: US)
  Receive Date: 20240812
  Receipt Date: 20240812
  Transmission Date: 20241017
  Serious: No
  Sender: ANI
  Company Number: US-ANIPHARMA-2024-US-016708

PATIENT
  Age: 46 Year
  Sex: Male

DRUGS (13)
  1. CORTICOTROPIN [Suspect]
     Active Substance: CORTICOTROPIN
     Indication: Pulmonary sarcoidosis
     Dosage: INJECT 40 UNITS (0.5ML) SUBCUTANEOUSLY TWO TIMES PER WEEK DISCARD VIAL 28 DAYS AFTER 1ST USE
     Route: 058
  2. MOMETASONE FUROATE [Concomitant]
     Active Substance: MOMETASONE FUROATE
  3. REMICADE [Concomitant]
     Active Substance: INFLIXIMAB
  4. CENTRUM SILVER 50+MEN [Concomitant]
  5. CLONAZEPAM [Concomitant]
     Active Substance: CLONAZEPAM
  6. VITAMIN B12 [Concomitant]
     Active Substance: CYANOCOBALAMIN
  7. EQ LORATADINE [Concomitant]
  8. ACETAMINOPHEN\OXYCODONE HYDROCHLORIDE [Concomitant]
     Active Substance: ACETAMINOPHEN\OXYCODONE HYDROCHLORIDE
  9. DICLOFENAC SODIUM [Concomitant]
     Active Substance: DICLOFENAC\DICLOFENAC SODIUM
  10. GABAPENTIN [Concomitant]
     Active Substance: GABAPENTIN
  11. CLINDAMYCIN PHOSPHATE [Concomitant]
     Active Substance: CLINDAMYCIN PHOSPHATE
  12. FLUTICASONE PROPIONATE HFA [Concomitant]
     Active Substance: FLUTICASONE PROPIONATE
  13. KETOCONAZOLE [Concomitant]
     Active Substance: KETOCONAZOLE

REACTIONS (2)
  - Product dose omission issue [Unknown]
  - Dyspnoea [Unknown]

NARRATIVE: CASE EVENT DATE: 20240315
